FAERS Safety Report 25574075 (Version 1)
Quarter: 2025Q3

REPORT INFORMATION
  Report Type: Spontaneous
  Country: CA (occurrence: CA)
  Receive Date: 20250717
  Receipt Date: 20250717
  Transmission Date: 20251021
  Serious: Yes (Hospitalization, Other)
  Sender: AMGEN
  Company Number: CA-AMGEN-CANSP2025135585

PATIENT

DRUGS (3)
  1. RITUXIMAB [Suspect]
     Active Substance: RITUXIMAB
     Indication: Systemic lupus erythematosus
     Route: 065
  2. RITUXIMAB [Suspect]
     Active Substance: RITUXIMAB
     Indication: Rheumatoid arthritis
  3. RITUXIMAB [Suspect]
     Active Substance: RITUXIMAB
     Indication: Vasculitis

REACTIONS (14)
  - Pulmonary embolism [Unknown]
  - Behcet^s syndrome [Unknown]
  - Chronic obstructive pulmonary disease [Unknown]
  - Chondrocalcinosis [Unknown]
  - Organising pneumonia [Unknown]
  - COVID-19 [Unknown]
  - Intussusception [Unknown]
  - Mixed connective tissue disease [Unknown]
  - Antisynthetase syndrome [Unknown]
  - Mixed connective tissue disease [Unknown]
  - Pneumonia [Unknown]
  - Respiratory distress [Unknown]
  - Bronchitis [Unknown]
  - Stoma site haemorrhage [Unknown]
